FAERS Safety Report 14315461 (Version 1)
Quarter: 2017Q4

REPORT INFORMATION
  Report Type: Report from Study
  Country: CA (occurrence: CA)
  Receive Date: 20171221
  Receipt Date: 20171221
  Transmission Date: 20180321
  Serious: Yes (Hospitalization, Other)
  Sender: FDA-Public Use
  Company Number: CA-GILEAD-2017-0311566

PATIENT
  Age: 64 Year
  Sex: Male

DRUGS (3)
  1. LEDIPASVIR/SOFOSBUVIR [Suspect]
     Active Substance: LEDIPASVIR\SOFOSBUVIR
     Indication: CHRONIC HEPATITIS C
     Dosage: 1 DF, UNK
     Route: 048
     Dates: start: 20170929
  2. PANTOPRAZOLE [Concomitant]
     Active Substance: PANTOPRAZOLE
     Dosage: 20 MG, QD
     Route: 048
  3. PANTOPRAZOLE [Concomitant]
     Active Substance: PANTOPRAZOLE
     Indication: GASTROINTESTINAL HAEMORRHAGE
     Dosage: 20 MG, QD
     Dates: start: 20171208

REACTIONS (2)
  - Gastrointestinal haemorrhage [Recovering/Resolving]
  - Clostridium difficile infection [Recovering/Resolving]

NARRATIVE: CASE EVENT DATE: 201712
